FAERS Safety Report 6072372-6 (Version None)
Quarter: 2009Q1

REPORT INFORMATION
  Report Type: 
  Country: None (occurrence: None)
  Receive Date: 20090210
  Receipt Date: 20090206
  Transmission Date: 20090719
  Serious: Yes (Death, Other)
  Sender: FDA-Public Use
  Company Number: PHEH2009US01473

PATIENT
  Sex: Female

DRUGS (9)
  1. TRILEPTAL [Suspect]
     Indication: BIPOLAR II DISORDER
     Dosage: 150 MG THREE DAILY
     Route: 048
     Dates: start: 20050203, end: 20081220
  2. ACCUPRIL [Concomitant]
  3. ALDACTONE [Concomitant]
  4. COREG [Concomitant]
  5. CYMBALTA [Concomitant]
     Indication: BIPOLAR II DISORDER
     Dosage: 40 MG, QD
     Dates: start: 20050505, end: 20081220
  6. DEMADEX [Concomitant]
  7. LIPITOR [Concomitant]
  8. K-DUR [Concomitant]
  9. LANOXIN [Concomitant]

REACTIONS (2)
  - DEPRESSION [None]
  - MYOCARDIAL INFARCTION [None]
